FAERS Safety Report 4387160-6 (Version None)
Quarter: 2004Q2

REPORT INFORMATION
  Report Type: 
  Country: None (occurrence: None)
  Receive Date: 20040630
  Receipt Date: 20040317
  Transmission Date: 20050107
  Serious: No
  Sender: FDA-Public Use
  Company Number: US-GLAXOSMITHKLINE-A0503187A

PATIENT
  Age: 66 Year
  Sex: Female

DRUGS (12)
  1. ADVAIR HFA [Suspect]
     Indication: ASTHMA
     Dosage: 1PUFF TWICE PER DAY
     Route: 055
     Dates: start: 20040310, end: 20040316
  2. LEVAQUIN [Concomitant]
  3. ALBUTEROL [Concomitant]
  4. PREDNISONE [Concomitant]
  5. VASOTEC [Concomitant]
  6. ASACOL [Concomitant]
  7. PLAQUENIL [Concomitant]
  8. DETROL LA [Concomitant]
  9. FLONASE [Concomitant]
  10. FOSAMAX [Concomitant]
  11. CLARITIN [Concomitant]
  12. CORTISONE [Concomitant]

REACTIONS (4)
  - HOARSENESS [None]
  - ODYNOPHAGIA [None]
  - ORAL CANDIDIASIS [None]
  - WHEEZING [None]
